FAERS Safety Report 8245905-9 (Version None)
Quarter: 2012Q1

REPORT INFORMATION
  Report Type: 
  Country: None (occurrence: None)
  Receive Date: 20120330
  Receipt Date: 20120323
  Transmission Date: 20120608
  Serious: Yes (Other)
  Sender: FDA-Public Use
  Company Number: US-BAYER-201041678NA

PATIENT
  Sex: Female
  Weight: 58.503 kg

DRUGS (1)
  1. MIRENA [Suspect]
     Indication: PRODUCT USED FOR UNKNOWN INDICATION
     Dosage: INSERTED ON ABOUT 6 TO 8 MONTHS PRIOR TO FIRST REPORT
     Route: 015
     Dates: start: 20090312, end: 20120301

REACTIONS (5)
  - DEVICE DISLOCATION [None]
  - GENITAL HAEMORRHAGE [None]
  - UTERINE PERFORATION [None]
  - MENORRHAGIA [None]
  - ABDOMINAL PAIN [None]
